FAERS Safety Report 18722031 (Version 1)
Quarter: 2021Q1

REPORT INFORMATION
  Report Type: Spontaneous
  Country: ES (occurrence: ES)
  Receive Date: 20210111
  Receipt Date: 20210111
  Transmission Date: 20210419
  Serious: Yes (Life-Threatening, Hospitalization, Other)
  Sender: FDA-Public Use
  Company Number: ES-AUROBINDO-AUR-APL-2020-063400

PATIENT
  Age: 70 Year
  Sex: Male

DRUGS (7)
  1. DISTRANEURINE [Interacting]
     Active Substance: CLOMETHIAZOLE
     Indication: AGITATION
     Dosage: 192 MILLIGRAM, ONCE A DAY (0?0?1)
     Route: 048
     Dates: start: 20201020, end: 20201022
  2. CLOMIPRAMINE HYDROCHLORIDE. [Interacting]
     Active Substance: CLOMIPRAMINE HYDROCHLORIDE
     Indication: CONFUSIONAL STATE
     Dosage: 37.5 MILLIGRAM, TWO TIMES A DAY (1?0?1)
     Route: 048
     Dates: start: 20201021, end: 20201022
  3. FORMOTEROL ALDO UNION [Concomitant]
     Indication: CHRONIC OBSTRUCTIVE PULMONARY DISEASE
     Dosage: UNK UNK, TWO TIMES A DAY 1 INHALACON
     Route: 055
     Dates: start: 20191014
  4. QUETIAPINE. [Suspect]
     Active Substance: QUETIAPINE
     Indication: AGITATION
     Dosage: 100 MILLIGRAM, ONCE A DAY (1?1?2)
     Route: 048
     Dates: start: 20201018, end: 20201019
  5. HALOPERIDOL. [Interacting]
     Active Substance: HALOPERIDOL
     Indication: AGITATION
     Dosage: 10 MILLIGRAM 1 TOTAL (10 MG COMO RESCATE)
     Route: 042
     Dates: start: 20201021, end: 20201021
  6. QUETIAPINE. [Interacting]
     Active Substance: QUETIAPINE
     Dosage: 175 MILLIGRAM, ONCE A DAY
     Route: 048
     Dates: start: 20201021, end: 20201022
  7. QUETIAPINE. [Interacting]
     Active Substance: QUETIAPINE
     Dosage: 150 MILLIGRAM, ONCE A DAY (1?2?3)
     Route: 048
     Dates: start: 20201019, end: 20201020

REACTIONS (3)
  - Drug interaction [Unknown]
  - Neuroleptic malignant syndrome [Recovering/Resolving]
  - Off label use [Unknown]

NARRATIVE: CASE EVENT DATE: 20201021
